FAERS Safety Report 6576727-2 (Version None)
Quarter: 2010Q1

REPORT INFORMATION
  Report Type: 
  Country: None (occurrence: None)
  Receive Date: 20100210
  Receipt Date: 20100201
  Transmission Date: 20100710
  Serious: Yes (Other)
  Sender: FDA-Public Use
  Company Number: PL-ROCHE-683210

PATIENT
  Age: 37 Year
  Sex: Male

DRUGS (1)
  1. PEGASYS [Suspect]
     Indication: DRUG USE FOR UNKNOWN INDICATION
     Route: 065

REACTIONS (5)
  - ARTHRALGIA [None]
  - HEADACHE [None]
  - JOINT RANGE OF MOTION DECREASED [None]
  - NODULE ON EXTREMITY [None]
  - PSORIASIS [None]
